FAERS Safety Report 9437832 (Version 1)
Quarter: 2013Q3

REPORT INFORMATION
  Report Type: Spontaneous
  Country: US (occurrence: US)
  Receive Date: 20130802
  Receipt Date: 20130802
  Transmission Date: 20140515
  Serious: No
  Sender: FDA-Public Use
  Company Number: US-BRISTOL-MYERS SQUIBB COMPANY-17481078

PATIENT
  Sex: Male

DRUGS (7)
  1. COUMADIN [Suspect]
  2. CLOPIDOGREL BISULFATE [Concomitant]
  3. MULTIVITAMIN [Concomitant]
  4. COQ10 [Concomitant]
  5. FISH OIL [Concomitant]
  6. VITAMIN B12 [Concomitant]
  7. FLAXSEED [Concomitant]

REACTIONS (1)
  - International normalised ratio abnormal [Unknown]
